FAERS Safety Report 5829650-2 (Version None)
Quarter: 2008Q3

REPORT INFORMATION
  Report Type: 
  Country: None (occurrence: None)
  Receive Date: 20080729
  Receipt Date: 20080715
  Transmission Date: 20090109
  Serious: Yes (Hospitalization)
  Sender: FDA-Public Use
  Company Number: B0529808A

PATIENT
  Age: 13 Year
  Sex: Male

DRUGS (13)
  1. FLUTICASONE PROPIONATE [Suspect]
     Indication: BRONCHOSPASM
     Dosage: 250 MCG / TWICE PER DAY/ INHALED
     Route: 055
  2. ZIDOVUDINE [Suspect]
     Indication: HIV INFECTION
  3. RITONAVIR (FORMULATION UNKNOWN) (RITONAVIR) [Suspect]
     Indication: HIV INFECTION
  4. SAQUINAVIR (FORMULATION UNKNOWN) (SAQUINAVIR) [Suspect]
     Indication: HIV INFECTION
     Dates: start: 19990101, end: 20000101
  5. DIDANOSINE [Concomitant]
  6. INDINIVIR SULFATE [Concomitant]
  7. STAVUDINE [Concomitant]
  8. BRONCHODILATOR [Concomitant]
  9. CORTICOSTEROID [Concomitant]
  10. EFAVIRENZ [Concomitant]
  11. LOPINAVIR AND RITONAVIR [Concomitant]
  12. ABACAVIR SULFATE [Concomitant]
  13. LAMIVUDINE [Concomitant]

REACTIONS (13)
  - ACCIDENT [None]
  - ASTHENIA [None]
  - BRONCHOSPASM [None]
  - CUSHING'S SYNDROME [None]
  - DEHYDRATION [None]
  - DIARRHOEA [None]
  - DISEASE RECURRENCE [None]
  - DRUG HYPERSENSITIVITY [None]
  - DRUG INTERACTION [None]
  - DRUG INTOLERANCE [None]
  - GASTROENTERITIS SALMONELLA [None]
  - VIRAL LOAD INCREASED [None]
  - VOMITING [None]
